FAERS Safety Report 9694990 (Version 1)
Quarter: 2013Q4

REPORT INFORMATION
  Report Type: Spontaneous
  Country: US (occurrence: US)
  Receive Date: 20131119
  Receipt Date: 20131119
  Transmission Date: 20140711
  Serious: No
  Sender: FDA-Public Use
  Company Number: US-009507513-1311USA005396

PATIENT
  Age: 34 Year
  Sex: Female

DRUGS (1)
  1. NEXPLANON [Suspect]
     Indication: CONTRACEPTION
     Dosage: IMPLANT 3 YEARS (LEFT ARM)
     Route: 059
     Dates: start: 20130412

REACTIONS (3)
  - Breast tenderness [Unknown]
  - Amenorrhoea [Unknown]
  - Metrorrhagia [Unknown]
